FAERS Safety Report 21756002 (Version 2)
Quarter: 2022Q4

REPORT INFORMATION
  Report Type: Spontaneous
  Country: IN (occurrence: None)
  Receive Date: 20221220
  Receipt Date: 20221227
  Transmission Date: 20230113
  Serious: Yes (Hospitalization, Other)
  Sender: FDA-Public Use
  Company Number: IN-ROCHE-3241710

PATIENT
  Age: 32 Year
  Sex: Female
  Weight: 62 kg

DRUGS (12)
  1. AVASTIN [Suspect]
     Active Substance: BEVACIZUMAB
     Indication: Ovarian cancer
     Dosage: 10 MG/KB IV IN 500 ML NS OVER 1 HOUR/DAY FOR 21 DAYS
     Route: 042
     Dates: start: 20220814, end: 20220930
  2. GEMCITABINE [Concomitant]
     Active Substance: GEMCITABINE
     Indication: Ovarian cancer
     Dates: start: 20220930
  3. CISPLATIN [Concomitant]
     Active Substance: CISPLATIN
     Indication: Ovarian cancer
     Dates: start: 20220930
  4. GRANISETRON [Concomitant]
     Active Substance: GRANISETRON
     Route: 042
  5. FAMOTIDINE [Concomitant]
     Active Substance: FAMOTIDINE
  6. PACLITAXEL [Concomitant]
     Active Substance: PACLITAXEL
  7. CARBOPLATIN [Concomitant]
     Active Substance: CARBOPLATIN
     Route: 042
  8. DUPHALAC [Concomitant]
     Active Substance: LACTULOSE
  9. APREPITANT [Concomitant]
     Active Substance: APREPITANT
  10. DEXAMETHASONE [Concomitant]
     Active Substance: DEXAMETHASONE
     Route: 042
  11. DOMSTAL [Concomitant]
     Route: 065
  12. AMOXICILLIN [Concomitant]
     Active Substance: AMOXICILLIN
     Route: 042

REACTIONS (4)
  - Ascites [Recovered/Resolved]
  - Peritoneal disorder [Unknown]
  - Drug ineffective [Unknown]
  - Malignant neoplasm progression [Not Recovered/Not Resolved]
